FAERS Safety Report 12742268 (Version 1)
Quarter: 2016Q3

REPORT INFORMATION
  Report Type: Spontaneous
  Country: US (occurrence: US)
  Receive Date: 20160913
  Receipt Date: 20160913
  Transmission Date: 20161109
  Serious: Yes (Disabling, Other)
  Sender: FDA-Public Use
  Company Number: None

PATIENT
  Age: 74 Year
  Sex: Male
  Weight: 77.11 kg

DRUGS (7)
  1. VITAMIN D [Concomitant]
     Active Substance: CHOLECALCIFEROL
  2. CRESTOR [Concomitant]
     Active Substance: ROSUVASTATIN CALCIUM
  3. FINASTERIDE. [Concomitant]
     Active Substance: FINASTERIDE
  4. RAPAFLOW [Concomitant]
  5. HYDROCHLOROTHIAZIDE. [Concomitant]
     Active Substance: HYDROCHLOROTHIAZIDE
  6. STAXYN [Suspect]
     Active Substance: VARDENAFIL HYDROCHLORIDE TRIHYDRATE
     Indication: ERECTILE DYSFUNCTION
     Dosage: 1 AS NEEDED NO MORE THEN 1 DAILY MOUTH
     Route: 048
     Dates: start: 20160729, end: 20160731
  7. ASA [Concomitant]
     Active Substance: ASPIRIN

REACTIONS (1)
  - Visual acuity reduced [None]

NARRATIVE: CASE EVENT DATE: 20160508
